FAERS Safety Report 25152675 (Version 1)
Quarter: 2025Q2

REPORT INFORMATION
  Report Type: Spontaneous
  Country: US (occurrence: US)
  Receive Date: 20250402
  Receipt Date: 20250402
  Transmission Date: 20250716
  Serious: No
  Sender: SANOFI AVENTIS
  Company Number: US-SANOFI-02469032

PATIENT
  Age: 69 Year
  Sex: Male

DRUGS (1)
  1. LANTUS SOLOSTAR [Suspect]
     Active Substance: INSULIN GLARGINE
     Indication: Type 2 diabetes mellitus
     Dosage: 30 U, BID
     Dates: start: 2019, end: 2025

REACTIONS (5)
  - Hyperphagia [Unknown]
  - Pollakiuria [Unknown]
  - Bladder pain [Unknown]
  - Bladder irrigation [Unknown]
  - Off label use [Unknown]

NARRATIVE: CASE EVENT DATE: 20190101
